FAERS Safety Report 18205071 (Version 4)
Quarter: 2020Q3

REPORT INFORMATION
  Report Type: Spontaneous
  Country: NL (occurrence: NL)
  Receive Date: 20200828
  Receipt Date: 20200923
  Transmission Date: 20201103
  Serious: Yes (Death)
  Sender: FDA-Public Use
  Company Number: NL-ROCHE-2663192

PATIENT
  Sex: Female

DRUGS (2)
  1. OCREVUS [Suspect]
     Active Substance: OCRELIZUMAB
     Indication: MULTIPLE SCLEROSIS
     Dosage: LAST INFUSION ON 03/JUN/2020 (600 MG)
     Route: 042
     Dates: start: 201904
  2. ACTILYSE [Suspect]
     Active Substance: ALTEPLASE
     Indication: CEREBRAL INFARCTION
     Route: 065

REACTIONS (3)
  - Cerebral infarction [Fatal]
  - Cerebral haemorrhage [Fatal]
  - Inappropriate schedule of product administration [Unknown]
